FAERS Safety Report 5351929-1 (Version None)
Quarter: 2007Q2

REPORT INFORMATION
  Report Type: 
  Country: None (occurrence: None)
  Receive Date: 20070521
  Receipt Date: 20070309
  Transmission Date: 20071010
  Serious: No
  Sender: FDA-Public Use
  Company Number: WAES 0703USA01530

PATIENT
  Sex: Male
  Weight: 72.5755 kg

DRUGS (3)
  1. JANUVIA [Suspect]
     Indication: DIABETES MELLITUS NON-INSULIN-DEPENDENT
     Dosage: AM
  2. ACTOS [Concomitant]
  3. STARLIX [Concomitant]

REACTIONS (1)
  - HYPOGLYCAEMIA [None]
